FAERS Safety Report 7914491-2 (Version None)
Quarter: 2011Q4

REPORT INFORMATION
  Report Type: 
  Country: None (occurrence: None)
  Receive Date: 20111115
  Receipt Date: 20111104
  Transmission Date: 20120403
  Serious: Yes (Other)
  Sender: FDA-Public Use
  Company Number: JP-SANOFI-AVENTIS-2011SA074509

PATIENT
  Age: 19 Year
  Sex: Male

DRUGS (4)
  1. RASBURICASE [Suspect]
     Route: 065
  2. METHOTREXATE [Suspect]
     Dosage: HIGH DOSE
     Route: 065
  3. RASBURICASE [Suspect]
     Indication: HYPERURICAEMIA
     Route: 065
  4. CYTARABINE [Suspect]
     Dosage: HIGH DOSE
     Route: 065

REACTIONS (1)
  - HEPATIC FUNCTION ABNORMAL [None]
